FAERS Safety Report 24434258 (Version 1)
Quarter: 2024Q4

REPORT INFORMATION
  Report Type: Spontaneous
  Country: US (occurrence: US)
  Receive Date: 20241014
  Receipt Date: 20241014
  Transmission Date: 20250114
  Serious: No
  Sender: INCYTE
  Company Number: US-INCYTE CORPORATION-2024IN010487

PATIENT

DRUGS (1)
  1. OPZELURA [Suspect]
     Active Substance: RUXOLITINIB PHOSPHATE
     Dosage: UNK UNK, BID, 1.5%
     Route: 061

REACTIONS (4)
  - Wrong technique in product usage process [Unknown]
  - Product physical consistency issue [Unknown]
  - Product temperature excursion issue [Unknown]
  - Drug ineffective [Unknown]
